FAERS Safety Report 25538546 (Version 2)
Quarter: 2025Q3

REPORT INFORMATION
  Report Type: Spontaneous
  Country: JP (occurrence: JP)
  Receive Date: 20250710
  Receipt Date: 20250825
  Transmission Date: 20251021
  Serious: Yes (Other)
  Sender: JOHNSON AND JOHNSON
  Company Number: JP-JNJFOC-20250711539

PATIENT
  Age: 73 Year
  Sex: Female

DRUGS (6)
  1. TREMFYA [Suspect]
     Active Substance: GUSELKUMAB
     Indication: Palmoplantar pustulosis
     Route: 058
  2. TREMFYA [Suspect]
     Active Substance: GUSELKUMAB
  3. TREMFYA [Suspect]
     Active Substance: GUSELKUMAB
  4. APREMILAST [Concomitant]
     Active Substance: APREMILAST
     Indication: Palmoplantar pustulosis
     Route: 048
  5. APREMILAST [Concomitant]
     Active Substance: APREMILAST
     Route: 048
  6. APREMILAST [Concomitant]
     Active Substance: APREMILAST
     Route: 048

REACTIONS (1)
  - Gastroenteritis salmonella [Unknown]
